FAERS Safety Report 11844942 (Version 1)
Quarter: 2015Q4

REPORT INFORMATION
  Report Type: Spontaneous
  Country: US (occurrence: US)
  Receive Date: 20151217
  Receipt Date: 20151217
  Transmission Date: 20160305
  Serious: Yes (Hospitalization, Other)
  Sender: FDA-Public Use
  Company Number: US-AMNEAL PHARMACEUTICALS-2015AMN00200

PATIENT
  Sex: Male
  Weight: 117.91 kg

DRUGS (9)
  1. GABAPENTIN. [Suspect]
     Active Substance: GABAPENTIN
     Indication: BACK PAIN
     Dosage: 300 MG, 2X/DAY, IN THE MORING AND AT NIGHT
     Dates: start: 2013
  2. NEURONTIN [Concomitant]
     Active Substance: GABAPENTIN
     Indication: BACK PAIN
     Dosage: UNK
     Route: 048
     Dates: end: 2013
  3. CELEBREX (SEARLE) [Concomitant]
     Indication: SPINAL COLUMN STENOSIS
  4. GABAPENTIN. [Suspect]
     Active Substance: GABAPENTIN
     Indication: SPINAL COLUMN STENOSIS
  5. CELEBREX (SEARLE) [Concomitant]
     Indication: BACK PAIN
     Dosage: 400 MG, 1X/DAY
     Route: 048
  6. NEURONTIN [Concomitant]
     Active Substance: GABAPENTIN
     Indication: INTERVERTEBRAL DISC DEGENERATION
  7. HYDROCODONE / ACETAMINOPHEN (ACTAVIS) [Concomitant]
     Indication: BACK PAIN
     Dosage: ONE TABLET EVERY SIX HOURS WHEN NEEDED
  8. GABAPENTIN. [Suspect]
     Active Substance: GABAPENTIN
     Indication: INTERVERTEBRAL DISC DEGENERATION
  9. CELEBREX (SEARLE) [Concomitant]
     Indication: INTERVERTEBRAL DISC DEGENERATION

REACTIONS (13)
  - Loss of consciousness [Recovered/Resolved]
  - Hypertension [Unknown]
  - Memory impairment [Not Recovered/Not Resolved]
  - Oxygen saturation decreased [Recovering/Resolving]
  - Muscle atrophy [Recovering/Resolving]
  - Mobility decreased [Recovering/Resolving]
  - Drug ineffective [Not Recovered/Not Resolved]
  - Pulmonary embolism [Recovered/Resolved]
  - Dyspnoea [Unknown]
  - Concussion [Unknown]
  - Coma [Recovered/Resolved]
  - Road traffic accident [Unknown]
  - Speech disorder [Unknown]

NARRATIVE: CASE EVENT DATE: 2013
